FAERS Safety Report 6694851-0 (Version None)
Quarter: 2010Q2

REPORT INFORMATION
  Report Type: 
  Country: None (occurrence: None)
  Receive Date: 20100420
  Receipt Date: 20100407
  Transmission Date: 20101027
  Serious: Yes (Hospitalization)
  Sender: FDA-Public Use
  Company Number: 010236

PATIENT
  Sex: Female

DRUGS (2)
  1. OMEPRAZOLE [Suspect]
     Indication: PROPHYLAXIS
     Dosage: (40 MG ORAL)
     Route: 048
     Dates: start: 20070226
  2. UNKNOWN (BLINDED VACCINE INJECTION) [Suspect]
     Dosage: (INTRAMUSCULAR)
     Route: 030
     Dates: start: 20091009, end: 20091009

REACTIONS (3)
  - DECUBITUS ULCER [None]
  - FALL [None]
  - FEMORAL NECK FRACTURE [None]
